FAERS Safety Report 15833809 (Version 2)
Quarter: 2019Q1

REPORT INFORMATION
  Report Type: Spontaneous
  Country: JP (occurrence: JP)
  Receive Date: 20190116
  Receipt Date: 20190118
  Transmission Date: 20190417
  Serious: Yes (Other)
  Sender: FDA-Public Use
  Company Number: JP-TEVA-2019-JP-000135J

PATIENT
  Sex: Male

DRUGS (6)
  1. LENDORMIN [Suspect]
     Active Substance: BROTIZOLAM
     Route: 065
  2. XARELTO [Suspect]
     Active Substance: RIVAROXABAN
     Route: 065
  3. CERCINE [Suspect]
     Active Substance: DIAZEPAM
     Indication: PRODUCT USED FOR UNKNOWN INDICATION
     Route: 065
  4. MAINTATE [Suspect]
     Active Substance: BISOPROLOL FUMARATE
     Route: 065
  5. UNISIA [Suspect]
     Active Substance: AMLODIPINE BESYLATE\CANDESARTAN CILEXETIL
     Indication: PRODUCT USED FOR UNKNOWN INDICATION
     Route: 065
  6. SUNRYTHM [Suspect]
     Active Substance: PILSICAINIDE HYDROCHLORIDE
     Route: 065

REACTIONS (1)
  - Arrhythmia [Unknown]
